FAERS Safety Report 24371503 (Version 1)
Quarter: 2024Q3

REPORT INFORMATION
  Report Type: Spontaneous
  Country: GR (occurrence: GR)
  Receive Date: 20240927
  Receipt Date: 20240927
  Transmission Date: 20241016
  Serious: Yes (Death)
  Sender: AMGEN
  Company Number: GR-ROCHE-3355060

PATIENT
  Age: 90 Year
  Sex: Female
  Weight: 67 kg

DRUGS (4)
  1. BEVACIZUMAB [Suspect]
     Active Substance: BEVACIZUMAB
     Indication: Neoplasm
     Dosage: 500 MILLIGRAM, Q3WK, LAST ADMISNIATRATION DOSE ON 01/FEB/2023
     Route: 040
     Dates: start: 20221019, end: 20240314
  2. CAPECITABINE [Suspect]
     Active Substance: CAPECITABINE
     Indication: Neoplasm
     Dosage: 1000 MILLIGRAM, BID, LAST ADMISNIATRATION DOSE ON 21/FEB/2023
     Route: 048
     Dates: start: 20221019, end: 20230509
  3. CIMETIDINE [Concomitant]
     Active Substance: CIMETIDINE
     Dosage: 20 MILLIGRAM, Q3WK, (1 AMP)
     Route: 040
  4. ACETAMINOPHEN [Concomitant]
     Active Substance: ACETAMINOPHEN
     Dosage: 1 GRAM, Q3WK
     Route: 040

REACTIONS (3)
  - Death [Fatal]
  - Palmar-plantar erythrodysaesthesia syndrome [Not Recovered/Not Resolved]
  - Off label use [Unknown]

NARRATIVE: CASE EVENT DATE: 20221019
